FAERS Safety Report 7055094-4 (Version None)
Quarter: 2010Q4

REPORT INFORMATION
  Report Type: 
  Country: None (occurrence: None)
  Receive Date: 20101021
  Receipt Date: 20101011
  Transmission Date: 20110411
  Serious: Yes (Other)
  Sender: FDA-Public Use
  Company Number: US-BAXTER-2010BH025408

PATIENT
  Age: 32 Year
  Sex: Male

DRUGS (9)
  1. GAMMAGARD LIQUID [Suspect]
     Indication: PERIPHERAL MOTOR NEUROPATHY
     Route: 042
     Dates: start: 20101011, end: 20101011
  2. GAMMAGARD LIQUID [Suspect]
     Indication: OFF LABEL USE
     Route: 042
     Dates: start: 20101011, end: 20101011
  3. GAMMAGARD LIQUID [Suspect]
     Route: 042
     Dates: start: 20080101
  4. GAMMAGARD LIQUID [Suspect]
     Route: 042
     Dates: start: 20080101
  5. PRASTERONE [Concomitant]
  6. LOVAZA [Concomitant]
  7. VITAMIN B-12 [Concomitant]
  8. ACETAMINOPHEN [Concomitant]
  9. DIPHENHYDRAMINE HCL [Concomitant]
     Indication: PREMEDICATION

REACTIONS (3)
  - CHEST DISCOMFORT [None]
  - CHILLS [None]
  - URTICARIA [None]
